FAERS Safety Report 5317871-7 (Version None)
Quarter: 2007Q2

REPORT INFORMATION
  Report Type: 
  Country: None (occurrence: None)
  Receive Date: 20070430
  Receipt Date: 20070413
  Transmission Date: 20071010
  Serious: Yes (Hospitalization)
  Sender: FDA-Public Use
  Company Number: 2007-RR-06926

PATIENT
  Age: 4 Year
  Sex: Male

DRUGS (2)
  1. CEFACLOR [Suspect]
     Indication: PHARYNGITIS
     Dosage: ORAL
     Route: 048
  2. SULTAMICILLIN (AMPICILLIN, SULBACTAM) [Suspect]
     Indication: ACUTE TONSILLITIS
     Dosage: ORAL
     Route: 048

REACTIONS (5)
  - ACUTE TONSILLITIS [None]
  - DRUG INEFFECTIVE [None]
  - ECTHYMA [None]
  - GANGRENE [None]
  - STREPTOCOCCAL INFECTION [None]
